FAERS Safety Report 8264417-X (Version None)
Quarter: 2012Q2

REPORT INFORMATION
  Report Type: 
  Country: None (occurrence: None)
  Receive Date: 20120406
  Receipt Date: 20120330
  Transmission Date: 20120825
  Serious: Yes (Other)
  Sender: FDA-Public Use
  Company Number: PHHO2012GB005264

PATIENT
  Sex: Female

DRUGS (1)
  1. GILENYA [Suspect]
     Dosage: UNK
     Dates: start: 20050101

REACTIONS (1)
  - CARBON MONOXIDE DIFFUSING CAPACITY DECREASED [None]
